FAERS Safety Report 23591957 (Version 3)
Quarter: 2024Q2

REPORT INFORMATION
  Report Type: Spontaneous
  Country: US (occurrence: US)
  Receive Date: 20240304
  Receipt Date: 20240418
  Transmission Date: 20240716
  Serious: No
  Sender: FDA-Public Use
  Company Number: US-SA-SAC20240229000716

PATIENT
  Age: 14 Year
  Sex: Female

DRUGS (1)
  1. DUPIXENT [Suspect]
     Active Substance: DUPILUMAB
     Indication: Eosinophilic oesophagitis
     Dosage: 300 MG, QW
     Route: 058
     Dates: start: 202401, end: 2024

REACTIONS (12)
  - Injection site pain [Unknown]
  - Vitreous floaters [Unknown]
  - Chest pain [Unknown]
  - Paraesthesia [Unknown]
  - Dyspnoea [Unknown]
  - Headache [Unknown]
  - Hypoaesthesia [Unknown]
  - Flushing [Unknown]
  - Myalgia [Not Recovered/Not Resolved]
  - Insomnia [Unknown]
  - Dizziness [Unknown]
  - Arthralgia [Not Recovered/Not Resolved]

NARRATIVE: CASE EVENT DATE: 20240101
